FAERS Safety Report 14103791 (Version 1)
Quarter: 2017Q4

REPORT INFORMATION
  Report Type: Spontaneous
  Country: US (occurrence: US)
  Receive Date: 20171018
  Receipt Date: 20171018
  Transmission Date: 20180321
  Serious: Yes (Death)
  Sender: FDA-Public Use
  Company Number: US-MALLINCKRODT-T201704114

PATIENT
  Age: 27 Year
  Sex: Male

DRUGS (1)
  1. MORPHINE [Suspect]
     Active Substance: MORPHINE
     Indication: PRODUCT USED FOR UNKNOWN INDICATION
     Route: 065

REACTIONS (15)
  - Myocardial ischaemia [Fatal]
  - Bronchial hyperreactivity [Fatal]
  - Acute lung injury [Fatal]
  - Coagulopathy [Fatal]
  - Rhabdomyolysis [Fatal]
  - Coma [Fatal]
  - Respiratory depression [Fatal]
  - Toxicity to various agents [Fatal]
  - Metabolic acidosis [Fatal]
  - Anion gap [Fatal]
  - Bradypnoea [Fatal]
  - Acute kidney injury [Fatal]
  - Hypotension [Fatal]
  - Asthma [Fatal]
  - Depressed level of consciousness [Fatal]
